FAERS Safety Report 8392731-6 (Version None)
Quarter: 2012Q2

REPORT INFORMATION
  Report Type: 
  Country: None (occurrence: None)
  Receive Date: 20120529
  Receipt Date: 20120521
  Transmission Date: 20120825
  Serious: Yes (Hospitalization)
  Sender: FDA-Public Use
  Company Number: JP-ABBOTT-12P-087-0936972-00

PATIENT
  Age: 65 Year
  Sex: Male
  Weight: 50 kg

DRUGS (10)
  1. DEPAKENE [Suspect]
     Indication: CONVULSION PROPHYLAXIS
  2. BIOLACTIS [Concomitant]
     Indication: DIARRHOEA
     Route: 048
     Dates: start: 20110309
  3. HIRUDOID [Concomitant]
     Indication: PARONYCHIA
     Dates: start: 20120329
  4. DEPAKENE [Suspect]
     Indication: NON-SMALL CELL LUNG CANCER
     Route: 048
     Dates: start: 20120305
  5. GENTAMICIN SULFATE [Concomitant]
     Indication: PARONYCHIA
     Dates: start: 20120329
  6. ERLOTINIB HYDROCHLORIDE [Suspect]
     Indication: NON-SMALL CELL LUNG CANCER
     Dates: start: 20120301
  7. LANSOPRAZOLE [Concomitant]
     Indication: GASTRITIS PROPHYLAXIS
     Dosage: DAILY DOSE: 15MG
     Route: 048
     Dates: start: 20101101
  8. CLOBETASOL PROPIONATE [Concomitant]
     Indication: PARONYCHIA
     Dates: start: 20120329
  9. MINOCYCLINE HCL [Concomitant]
     Indication: PARONYCHIA
     Dosage: DAILY DOSE: 100MG
     Dates: start: 20120329
  10. EYE DROP (SHINRYOKUSUI) [Concomitant]
     Indication: CATARACT
     Route: 047
     Dates: start: 20110101

REACTIONS (4)
  - NAUSEA [None]
  - GAIT DISTURBANCE [None]
  - DISORIENTATION [None]
  - BLOOD CREATINE PHOSPHOKINASE INCREASED [None]
